FAERS Safety Report 8401670-3 (Version None)
Quarter: 2012Q2

REPORT INFORMATION
  Report Type: 
  Country: None (occurrence: None)
  Receive Date: 20120601
  Receipt Date: 20120524
  Transmission Date: 20120825
  Serious: Yes (Other)
  Sender: FDA-Public Use
  Company Number: US-ASTELLAS-2012US004531

PATIENT
  Sex: Female
  Weight: 62 kg

DRUGS (2)
  1. PROGRAF [Suspect]
     Indication: RENAL TRANSPLANT
     Dosage: 4 MG BID AND 10 MG DAILY
     Route: 048
     Dates: start: 20030801
  2. PROGRAF [Suspect]
     Dosage: 9 MG, BID
     Route: 048
     Dates: start: 20120501

REACTIONS (1)
  - DIALYSIS [None]
